FAERS Safety Report 5093814-9 (Version None)
Quarter: 2006Q3

REPORT INFORMATION
  Report Type: 
  Country: None (occurrence: None)
  Receive Date: 20060831
  Receipt Date: 20050908
  Transmission Date: 20061208
  Serious: Yes (Other)
  Sender: FDA-Public Use
  Company Number: PHBS2005BR13211

PATIENT
  Age: 71 Year
  Sex: Male
  Weight: 105 kg

DRUGS (6)
  1. DIOVAN HCT [Suspect]
     Indication: HYPERTENSION
     Dosage: VAL 80 / HCT 12.5 MG, QD
     Route: 048
     Dates: start: 20040501
  2. CELEBRA [Concomitant]
     Indication: ARTHRALGIA
  3. TANDRILAX [Concomitant]
     Indication: ARTHRALGIA
  4. PARACETAMOL/ CAFFEINE [Concomitant]
     Indication: ARTHRALGIA
  5. CARISOPRODOL [Concomitant]
     Indication: ARTHRALGIA
  6. DICLOFENAC [Concomitant]
     Indication: ARTHRALGIA

REACTIONS (6)
  - BLOOD GLUCOSE INCREASED [None]
  - DIABETES MELLITUS [None]
  - GLYCOSYLATED HAEMOGLOBIN INCREASED [None]
  - TENDON RUPTURE [None]
  - THROMBOCYTOPENIA [None]
  - WEIGHT DECREASED [None]
